FAERS Safety Report 10244325 (Version 1)
Quarter: 2014Q2

REPORT INFORMATION
  Report Type: Spontaneous
  Country: GB (occurrence: None)
  Receive Date: 20140616
  Receipt Date: 20140616
  Transmission Date: 20141212
  Serious: Yes (Other)
  Sender: FDA-Public Use
  Company Number: CL-570-2014

PATIENT
  Age: 49 Year
  Sex: Female
  Weight: 69.85 kg

DRUGS (4)
  1. FLUCONAZOLE UNK [Suspect]
     Indication: VULVOVAGINAL CANDIDIASIS
     Route: 048
     Dates: start: 20140312
  2. SERTRALINE [Concomitant]
  3. ZOLOFT [Concomitant]
  4. ZOPICLONE [Concomitant]

REACTIONS (1)
  - Tremor [None]
